FAERS Safety Report 6925568-2 (Version None)
Quarter: 2010Q3

REPORT INFORMATION
  Report Type: 
  Country: None (occurrence: None)
  Receive Date: 20100810
  Receipt Date: 20100803
  Transmission Date: 20110219
  Serious: Yes (Hospitalization)
  Sender: FDA-Public Use
  Company Number: 2010SP042100

PATIENT
  Age: 20 Year
  Sex: Female

DRUGS (7)
  1. DESLORATADINE [Suspect]
     Indication: HYPERSENSITIVITY
     Dosage: PO
     Route: 048
     Dates: start: 20100401, end: 20100630
  2. MEXITIL [Suspect]
     Indication: MYOTONIA
     Dosage: PO
     Route: 048
     Dates: start: 20100512, end: 20100629
  3. LOPRESSOR [Suspect]
     Indication: MIGRAINE
     Dosage: PO
     Route: 048
     Dates: start: 20100607, end: 20100629
  4. ATARAX [Suspect]
     Indication: PRODUCT USED FOR UNKNOWN INDICATION
     Dosage: PO
     Route: 048
     Dates: start: 20100610, end: 20100701
  5. ZOMIG [Concomitant]
  6. MAXALT [Concomitant]
  7. BOTOX [Concomitant]

REACTIONS (2)
  - DYSPNOEA EXERTIONAL [None]
  - MALAISE [None]
